FAERS Safety Report 11859779 (Version 1)
Quarter: 2015Q4

REPORT INFORMATION
  Report Type: Report from Study
  Country: JP (occurrence: JP)
  Receive Date: 20151222
  Receipt Date: 20151222
  Transmission Date: 20160305
  Serious: Yes (Hospitalization)
  Sender: FDA-Public Use
  Company Number: JP-EISAI MEDICAL RESEARCH-EC-2015-008244

PATIENT
  Age: 71 Year
  Sex: Male

DRUGS (11)
  1. FERROUS SULFATE [Concomitant]
     Active Substance: FERROUS SULFATE\FERROUS SULFATE, DRIED
  2. ARICEPT [Suspect]
     Active Substance: DONEPEZIL HYDROCHLORIDE
     Indication: DEMENTIA ALZHEIMER^S TYPE
     Route: 048
     Dates: start: 20140320, end: 20140402
  3. MEMARY [Concomitant]
     Active Substance: MEMANTINE HYDROCHLORIDE
  4. EPADEL S [Concomitant]
     Active Substance: ICOSAPENT ETHYL
  5. ARICEPT [Suspect]
     Active Substance: DONEPEZIL HYDROCHLORIDE
     Route: 048
     Dates: start: 20140403, end: 20141126
  6. MICARDIS [Concomitant]
     Active Substance: TELMISARTAN
  7. FUROSEMIDE. [Concomitant]
     Active Substance: FUROSEMIDE
  8. PLAVIX [Concomitant]
     Active Substance: CLOPIDOGREL BISULFATE
  9. LIPITOR [Concomitant]
     Active Substance: ATORVASTATIN CALCIUM
  10. TSUMURA YOKUKANSAN EXTRACT GRANULES FOR ETHICAL USE [Concomitant]
     Active Substance: HERBALS
  11. AMLODIPINE [Concomitant]
     Active Substance: AMLODIPINE BESYLATE

REACTIONS (1)
  - Cerebral infarction [Unknown]

NARRATIVE: CASE EVENT DATE: 20141110
